FAERS Safety Report 8002970-1 (Version None)
Quarter: 2011Q4

REPORT INFORMATION
  Report Type: 
  Country: None (occurrence: None)
  Receive Date: 20111222
  Receipt Date: 20110531
  Transmission Date: 20120403
  Serious: No
  Sender: FDA-Public Use
  Company Number: US-GLAXOSMITHKLINE-A0930826A

PATIENT
  Age: 86 Year
  Sex: Male

DRUGS (5)
  1. DILTIAZEM HCL [Suspect]
     Indication: HYPERTENSION
     Dosage: 180MG PER DAY
     Route: 065
  2. SYNTHROID [Suspect]
     Dosage: .075MG PER DAY
     Route: 065
  3. HYDROXYZINE [Suspect]
     Indication: POST-TRAUMATIC STRESS DISORDER
     Dosage: 25MG AT NIGHT
     Route: 065
  4. AVODART [Suspect]
     Dosage: .5MG UNKNOWN
     Route: 065
     Dates: start: 20110101
  5. CLONIDINE HCL [Suspect]
     Indication: HYPERTENSION
     Dosage: .2MG THREE TIMES PER DAY
     Route: 065

REACTIONS (2)
  - BLOOD PRESSURE FLUCTUATION [None]
  - DRUG INTERACTION [None]
